FAERS Safety Report 17003895 (Version 1)
Quarter: 2019Q4

REPORT INFORMATION
  Report Type: Report from Study
  Country: None (occurrence: CA)
  Receive Date: 20191107
  Receipt Date: 20191107
  Transmission Date: 20200122
  Serious: Yes (Hospitalization, Other)
  Sender: FDA-Public Use
  Company Number: CA-ABBVIE-19K-028-2966809-00

PATIENT
  Sex: Female

DRUGS (2)
  1. HUMIRA [Suspect]
     Active Substance: ADALIMUMAB
     Indication: RHEUMATOID ARTHRITIS
     Route: 058
     Dates: start: 20120831, end: 2019
  2. CORTISONE [Suspect]
     Active Substance: CORTISONE
     Indication: PRODUCT USED FOR UNKNOWN INDICATION
     Route: 065

REACTIONS (10)
  - Unevaluable event [Unknown]
  - Cystitis [Unknown]
  - Subdural haematoma [Unknown]
  - Brain oedema [Unknown]
  - Urinary tract infection [Not Recovered/Not Resolved]
  - Thrombophlebitis [Unknown]
  - Pneumonia [Unknown]
  - Arthropathy [Recovering/Resolving]
  - Pulmonary embolism [Unknown]
  - Fall [Unknown]

NARRATIVE: CASE EVENT DATE: 2019
